FAERS Safety Report 7117984-3 (Version None)
Quarter: 2010Q4

REPORT INFORMATION
  Report Type: 
  Country: None (occurrence: None)
  Receive Date: 20101123
  Receipt Date: 20101108
  Transmission Date: 20110411
  Serious: Yes (Hospitalization, Other)
  Sender: FDA-Public Use
  Company Number: JP-PFIZER INC-2010134482

PATIENT
  Age: 61 Year
  Sex: Female
  Weight: 43 kg

DRUGS (4)
  1. CELECOXIB [Suspect]
     Indication: PAIN IN EXTREMITY
     Dosage: UNK
     Route: 048
     Dates: start: 20100823, end: 20100831
  2. SOLON [Concomitant]
     Indication: PAIN IN EXTREMITY
     Dosage: UNK
     Route: 048
     Dates: start: 20100823, end: 20100831
  3. DEPO-MEDROL [Concomitant]
     Dosage: UNK
     Dates: start: 20100823
  4. XYLOCAINE [Concomitant]
     Dosage: UNK
     Dates: start: 20100823

REACTIONS (1)
  - STEVENS-JOHNSON SYNDROME [None]
